FAERS Safety Report 5118325-3 (Version None)
Quarter: 2006Q4

REPORT INFORMATION
  Report Type: 
  Country: None (occurrence: None)
  Receive Date: 20061002
  Receipt Date: 20060519
  Transmission Date: 20070319
  Serious: Yes (Death, Hospitalization, Other)
  Sender: FDA-Public Use
  Company Number: FR-BAYER-200610471BFR

PATIENT
  Age: 51 Year
  Sex: Male
  Weight: 70 kg

DRUGS (24)
  1. SORAFENIB [Suspect]
     Indication: METASTATIC RENAL CELL CARCINOMA
     Dosage: TOTAL DAILY DOSE: 800 MG  UNIT DOSE: 400 MG
     Route: 048
     Dates: start: 20050711, end: 20050905
  2. SORAFENIB [Suspect]
     Dosage: TOTAL DAILY DOSE: 800 MG  UNIT DOSE: 400 MG
     Route: 048
     Dates: start: 20051024, end: 20051219
  3. SORAFENIB [Suspect]
     Dosage: TOTAL DAILY DOSE: 800 MG  UNIT DOSE: 400 MG
     Route: 048
     Dates: start: 20060220, end: 20060424
  4. SORAFENIB [Suspect]
     Dosage: TOTAL DAILY DOSE: 800 MG  UNIT DOSE: 400 MG
     Route: 048
     Dates: start: 20060424
  5. SORAFENIB [Suspect]
     Dosage: TOTAL DAILY DOSE: 800 MG  UNIT DOSE: 400 MG
     Route: 048
     Dates: start: 20051219, end: 20060220
  6. SORAFENIB [Suspect]
     Dosage: TOTAL DAILY DOSE: 800 MG  UNIT DOSE: 400 MG
     Route: 048
     Dates: start: 20050905, end: 20051024
  7. SORAFENIB [Suspect]
     Dosage: TOTAL DAILY DOSE: 800 MG  UNIT DOSE: 400 MG
     Route: 048
     Dates: start: 20050523, end: 20050711
  8. AVLOCARDYL [Concomitant]
     Indication: HYPERTENSION
     Dates: start: 20031119
  9. NOCTAMIDE [Concomitant]
     Indication: INSOMNIA
     Dates: start: 20031120
  10. LEXOMIL [Concomitant]
     Indication: ANXIETY
     Dates: start: 20031120
  11. EFFEXOR [Concomitant]
     Indication: ALCOHOLISM
     Dates: start: 20040927
  12. EQUANIL [Concomitant]
     Indication: ALCOHOLISM
     Dates: start: 20040927
  13. DOXYCYCLINE [Concomitant]
     Indication: RASH
     Dates: start: 20051003, end: 20060401
  14. ZENIAC [Concomitant]
     Indication: RASH
     Route: 061
     Dates: start: 20051024, end: 20060401
  15. DIFFERIN [Concomitant]
     Indication: RASH
     Route: 061
     Dates: start: 20051024, end: 20060401
  16. IMODIUM [Concomitant]
     Indication: DIARRHOEA
     Dates: start: 20060401
  17. IMODIUM [Concomitant]
     Dates: start: 20051019, end: 20051021
  18. PLAVIX [Concomitant]
     Indication: MYOCARDIAL INFARCTION
     Dates: start: 20060108
  19. ASPIRIN [Concomitant]
     Indication: MYOCARDIAL INFARCTION
     Dates: start: 20060209
  20. ASPIRIN [Concomitant]
     Dates: start: 20060108, end: 20060208
  21. BISOPROLOL FUMARATE [Concomitant]
     Indication: MYOCARDIAL INFARCTION
     Dates: start: 20060108
  22. PERINDOPRIL ERBUMINE [Concomitant]
     Indication: PROPHYLAXIS
     Dates: start: 20060113
  23. PARIET [Concomitant]
     Indication: PROPHYLAXIS AGAINST GASTROINTESTINAL ULCER
     Dates: start: 20060113
  24. QUESTRAN [Concomitant]
     Indication: DIARRHOEA
     Dates: start: 20060424

REACTIONS (3)
  - CHEST PAIN [None]
  - CORONARY ARTERY INSUFFICIENCY [None]
  - MYOCARDIAL INFARCTION [None]
